FAERS Safety Report 20991999 (Version 1)
Quarter: 2022Q2

REPORT INFORMATION
  Report Type: Spontaneous
  Country: US (occurrence: None)
  Receive Date: 20220621
  Receipt Date: 20220621
  Transmission Date: 20220721
  Serious: Yes (Other)
  Sender: FDA-Public Use
  Company Number: None

PATIENT
  Age: 53 Year
  Sex: Female
  Weight: 115.67 kg

DRUGS (1)
  1. INGREZZA [Suspect]
     Active Substance: VALBENAZINE
     Indication: Dyskinesia
     Dosage: 40MG 1 QD PO?
     Dates: start: 20220509, end: 20220616

REACTIONS (2)
  - Diplopia [None]
  - Dizziness [None]

NARRATIVE: CASE EVENT DATE: 20220616
